FAERS Safety Report 4946260-X (Version None)
Quarter: 2006Q1

REPORT INFORMATION
  Report Type: 
  Country: None (occurrence: None)
  Receive Date: 20060317
  Receipt Date: 20050725
  Transmission Date: 20060701
  Serious: Yes (Hospitalization)
  Sender: FDA-Public Use
  Company Number: JP-RB-1903-2005

PATIENT
  Sex: Female

DRUGS (15)
  1. BUPRENORPHINE HCL [Suspect]
     Indication: ANALGESIC EFFECT
     Route: 054
     Dates: start: 20050419, end: 20050714
  2. LANSOPRAZOLE [Concomitant]
     Indication: GASTRIC ULCER
     Route: 048
     Dates: start: 20050405
  3. CANDESARTAN CILEXETIL [Concomitant]
     Indication: HYPERTENSION
     Route: 048
     Dates: start: 20050405
  4. FUROSEMIDE [Concomitant]
     Indication: DIURETIC THERAPY
     Route: 048
     Dates: start: 20050426
  5. FUROSEMIDE [Concomitant]
     Route: 041
     Dates: start: 20050521
  6. HUMAN RED BLOOD CELLS [Concomitant]
     Dosage: DOSAGE UNKNOWN
     Route: 041
     Dates: start: 20050520, end: 20050520
  7. HUMAN RED BLOOD CELLS [Concomitant]
     Dosage: DOSAGE UNKNOWN
     Route: 041
     Dates: start: 20050615, end: 20050615
  8. HUMAN RED BLOOD CELLS [Concomitant]
     Dosage: DOSAGE UNKNOWN
     Route: 041
     Dates: start: 20050704, end: 20050704
  9. ALPROSTADIL [Concomitant]
     Indication: ARTERIOSCLEROSIS
     Route: 041
     Dates: start: 20050526
  10. AMLODIPINE BESYLATE [Concomitant]
     Indication: HYPERTENSION
     Route: 048
     Dates: start: 20050527
  11. MAGNESIUM OXIDE [Concomitant]
     Indication: CONSTIPATION
     Route: 048
     Dates: start: 20050527
  12. LEVOFLOXACIN [Concomitant]
     Indication: URINARY TRACT INFECTION
     Route: 048
     Dates: start: 20050530, end: 20050616
  13. NAPROXEN [Concomitant]
     Indication: ANALGESIC EFFECT
     Route: 048
     Dates: start: 20050629, end: 20050729
  14. MEROPENEM TRIHYDRATE [Concomitant]
     Route: 041
     Dates: start: 20050630
  15. SULPIRIDE [Concomitant]
     Indication: DRUG USE FOR UNKNOWN INDICATION
     Dosage: DOSAGE UNKNOWN
     Route: 048
     Dates: start: 20050629

REACTIONS (1)
  - DELIRIUM [None]
